FAERS Safety Report 18009118 (Version 2)
Quarter: 2021Q3

REPORT INFORMATION
  Report Type: Spontaneous
  Country: US (occurrence: US)
  Receive Date: 20200710
  Receipt Date: 20210806
  Transmission Date: 20211014
  Serious: Yes (Hospitalization)
  Sender: FDA-Public Use
  Company Number: US-SAOL THERAPEUTICS-2020SAO00181

PATIENT
  Age: 32 Year
  Sex: Male

DRUGS (5)
  1. LIORESAL [Suspect]
     Active Substance: BACLOFEN
     Dosage: 351.2 ?G, \DAY
     Route: 037
     Dates: end: 20200629
  2. LIORESAL [Suspect]
     Active Substance: BACLOFEN
     Dosage: 200 ?G, \DAY
     Route: 037
     Dates: start: 20200707, end: 20200720
  3. LIORESAL [Suspect]
     Active Substance: BACLOFEN
     Indication: MUSCLE SPASTICITY
     Dosage: 200 ?G, \DAY
     Route: 037
  4. LIORESAL [Suspect]
     Active Substance: BACLOFEN
     Dosage: 270.2 ?G, \DAY
     Route: 037
     Dates: start: 20200629, end: 20200707
  5. LIORESAL [Suspect]
     Active Substance: BACLOFEN
     Dosage: 230 ?G, \DAY
     Route: 037
     Dates: start: 20200720

REACTIONS (3)
  - Complication associated with device [Recovered/Resolved]
  - Hypertonia [Recovered/Resolved]
  - Muscle spasticity [Recovered/Resolved]

NARRATIVE: CASE EVENT DATE: 20200629
